FAERS Safety Report 14389439 (Version 2)
Quarter: 2020Q1

REPORT INFORMATION
  Report Type: Spontaneous
  Country: US (occurrence: US)
  Receive Date: 20180115
  Receipt Date: 20200228
  Transmission Date: 20200409
  Serious: Yes (Other)
  Sender: FDA-Public Use
  Company Number: US-SA-2017SA244331

PATIENT
  Age: 50 Year
  Sex: Female
  Weight: 89 kg

DRUGS (2)
  1. DOCETAXEL. [Suspect]
     Active Substance: DOCETAXEL
     Dosage: UNK UNK,Q3W
     Route: 051
     Dates: start: 20150211, end: 20150211
  2. DOCETAXEL. [Suspect]
     Active Substance: DOCETAXEL
     Indication: BREAST CANCER FEMALE
     Dosage: UNK UNK,Q3W
     Route: 051
     Dates: start: 20141029, end: 20141029

REACTIONS (2)
  - Alopecia [Not Recovered/Not Resolved]
  - Psychological trauma [Unknown]

NARRATIVE: CASE EVENT DATE: 20150501
